FAERS Safety Report 9391555 (Version 1)
Quarter: 2013Q3

REPORT INFORMATION
  Report Type: Spontaneous
  Country: ES (occurrence: ES)
  Receive Date: 20130709
  Receipt Date: 20130709
  Transmission Date: 20140515
  Serious: Yes (Other)
  Sender: FDA-Public Use
  Company Number: ES-JNJFOC-20130703168

PATIENT
  Age: 86 Year
  Sex: Female

DRUGS (1)
  1. ZALDIAR [Suspect]
     Indication: PAIN
     Route: 048
     Dates: start: 20130607

REACTIONS (2)
  - Dizziness [Recovering/Resolving]
  - Hypersomnia [Recovering/Resolving]
